FAERS Safety Report 23247304 (Version 2)
Quarter: 2023Q4

REPORT INFORMATION
  Report Type: Spontaneous
  Country: RO (occurrence: RO)
  Receive Date: 20231130
  Receipt Date: 20231213
  Transmission Date: 20240110
  Serious: Yes (Hospitalization, Other)
  Sender: FDA-Public Use
  Company Number: RO-OTSUKA-2023_030857

PATIENT
  Sex: Male
  Weight: 74 kg

DRUGS (9)
  1. BREXPIPRAZOLE [Suspect]
     Active Substance: BREXPIPRAZOLE
     Indication: Schizophrenia
     Dosage: 1 MG, QD
     Route: 048
     Dates: start: 20231030, end: 20231031
  2. LORAZEPAM [Concomitant]
     Active Substance: LORAZEPAM
     Indication: Restlessness
     Dosage: 1 MG, QD
     Route: 048
     Dates: start: 20231026, end: 20231031
  3. LORAZEPAM [Concomitant]
     Active Substance: LORAZEPAM
     Dosage: 1 MG, QD
     Route: 048
     Dates: start: 20231103, end: 20231105
  4. LORAZEPAM [Concomitant]
     Active Substance: LORAZEPAM
     Dosage: 1 MG, BID
     Route: 048
     Dates: start: 20231106, end: 20231106
  5. LORAZEPAM [Concomitant]
     Active Substance: LORAZEPAM
     Dosage: 1 MG, QD
     Route: 048
     Dates: start: 20231107, end: 20231107
  6. LORAZEPAM [Concomitant]
     Active Substance: LORAZEPAM
     Dosage: 1 MG, BID
     Route: 048
     Dates: start: 20231108, end: 20231113
  7. LORAZEPAM [Concomitant]
     Active Substance: LORAZEPAM
     Dosage: 1 MG, QD
     Route: 048
     Dates: start: 20231114, end: 20231114
  8. LORAZEPAM [Concomitant]
     Active Substance: LORAZEPAM
     Dosage: 1 MG, BID
     Route: 048
     Dates: start: 20231115, end: 20231120
  9. LORAZEPAM [Concomitant]
     Active Substance: LORAZEPAM
     Dosage: 1 MG, QD
     Route: 048
     Dates: start: 20231121, end: 20231121

REACTIONS (1)
  - Schizophrenia [Recovering/Resolving]

NARRATIVE: CASE EVENT DATE: 20231122
